FAERS Safety Report 8033322-6 (Version None)
Quarter: 2012Q1

REPORT INFORMATION
  Report Type: 
  Country: None (occurrence: None)
  Receive Date: 20120110
  Receipt Date: 20120105
  Transmission Date: 20120608
  Serious: Yes (Other)
  Sender: FDA-Public Use
  Company Number: DE-JNJFOC-20111203211

PATIENT
  Sex: Male

DRUGS (3)
  1. SYMBICORT [Concomitant]
     Indication: BRONCHIAL HYPERREACTIVITY
     Route: 065
  2. NICOTINE [Suspect]
     Indication: SMOKING CESSATION THERAPY
     Dosage: THREE TO FOUR PIECES A DAY
     Route: 048
     Dates: start: 20110301, end: 20111101
  3. NEBIVOLOL HCL [Concomitant]
     Indication: HYPERTENSION
     Route: 065

REACTIONS (2)
  - TYPE 2 DIABETES MELLITUS [None]
  - INCORRECT DRUG ADMINISTRATION DURATION [None]
